FAERS Safety Report 8549421-6 (Version None)
Quarter: 2012Q3

REPORT INFORMATION
  Report Type: 
  Country: None (occurrence: None)
  Receive Date: 20120730
  Receipt Date: 20120725
  Transmission Date: 20120928
  Serious: Yes (Other)
  Sender: FDA-Public Use
  Company Number: US-PFIZER INC-2012180802

PATIENT
  Sex: Female
  Weight: 78.912 kg

DRUGS (4)
  1. RANITIDINE [Concomitant]
     Indication: GASTRIC DISORDER
     Dosage: UNK
  2. GLIPIZIDE [Concomitant]
     Dosage: UNK
  3. METFORMIN [Concomitant]
     Dosage: UNK
  4. LIPITOR [Suspect]
     Indication: BLOOD CHOLESTEROL INCREASED
     Dosage: 10 MG, 1X/DAY
     Route: 048
     Dates: start: 20120601

REACTIONS (2)
  - HYPERTENSION [None]
  - DIARRHOEA [None]
